FAERS Safety Report 9406482 (Version 1)
Quarter: 2013Q3

REPORT INFORMATION
  Report Type: Spontaneous
  Country: BR (occurrence: BR)
  Receive Date: 20130718
  Receipt Date: 20130718
  Transmission Date: 20140515
  Serious: Yes (Hospitalization, Other)
  Sender: FDA-Public Use
  Company Number: BR-ASTRAZENECA-2013SE52479

PATIENT
  Age: 68 Year
  Sex: Female
  Weight: 52 kg

DRUGS (12)
  1. NEXIUM [Suspect]
     Indication: GASTRIC DISORDER
     Route: 048
     Dates: start: 2012
  2. SELOZOK [Suspect]
     Route: 048
     Dates: start: 201208
  3. CRESTOR [Suspect]
     Indication: ATHEROSCLEROSIS PROPHYLAXIS
     Route: 048
     Dates: start: 20120415, end: 201304
  4. CRESTOR [Suspect]
     Indication: ATHEROSCLEROSIS PROPHYLAXIS
     Route: 048
  5. BRILINTA [Suspect]
     Indication: DRESSLER^S SYNDROME
     Route: 048
     Dates: start: 201304
  6. CLOPIDOGREL BISULFATE [Concomitant]
     Dates: start: 20120415, end: 201304
  7. ASA [Concomitant]
     Dosage: DAILY
     Dates: start: 2005, end: 201304
  8. ASA [Concomitant]
     Dosage: TWO TIMES DAILY
  9. MONOCORDIL [Concomitant]
     Dates: start: 2012
  10. ACTONEL [Concomitant]
     Indication: OSTEOPOROSIS
     Dosage: MONTHLY
     Dates: start: 2011
  11. ADDERA [Concomitant]
     Indication: VITAMIN D DEFICIENCY
     Dates: start: 2011
  12. PROCIMAX [Concomitant]
     Indication: ANXIETY
     Dates: start: 2012

REACTIONS (6)
  - Coronary artery occlusion [Recovered/Resolved]
  - Myocardial infarction [Recovered/Resolved]
  - Anxiety [Recovering/Resolving]
  - Anaemia [Unknown]
  - Off label use [Not Recovered/Not Resolved]
  - Drug dose omission [Unknown]
